FAERS Safety Report 10553140 (Version 2)
Quarter: 2016Q4

REPORT INFORMATION
  Report Type: Spontaneous
  Country: US (occurrence: US)
  Receive Date: 20141030
  Receipt Date: 20161124
  Transmission Date: 20170206
  Serious: Yes (Hospitalization)
  Sender: FDA-Public Use
  Company Number: US-RANBAXY-2014US-87077

PATIENT
  Age: 22 Year
  Sex: Male

DRUGS (11)
  1. FENATNYL [Concomitant]
     Indication: SEDATION
     Dosage: UNK
     Route: 065
  2. LORAZEPAM. [Suspect]
     Active Substance: LORAZEPAM
     Dosage: EVERY 2 HOURS AND CONTINUED AS-NEEDED DOSING
     Route: 065
  3. ALPRAZOLAM. [Concomitant]
     Active Substance: ALPRAZOLAM
     Indication: AGITATION
     Dosage: UNK
     Route: 065
  4. PROPOFOL. [Concomitant]
     Active Substance: PROPOFOL
     Indication: SEDATION
     Dosage: UNK
     Route: 065
  5. MIDAZOLAM [Suspect]
     Active Substance: MIDAZOLAM\MIDAZOLAM HYDROCHLORIDE
     Indication: SEDATION
     Dosage: MINIMUM OF 10 MG/H
     Route: 065
  6. LORAZEPAM. [Suspect]
     Active Substance: LORAZEPAM
     Indication: SEDATION
     Dosage: 28 MG/D
     Route: 065
  7. QUETIAPINE. [Concomitant]
     Active Substance: QUETIAPINE
     Indication: AGITATION
     Dosage: UNK
     Route: 065
  8. OLANZAPINE. [Concomitant]
     Active Substance: OLANZAPINE
     Indication: AGITATION
     Dosage: 10 MG EVERY 8 HOURS WITH 5 MG TWICE A DAY AS-NEEDED
     Route: 065
  9. FENATNYL [Concomitant]
     Indication: SEDATION
     Dosage: 300 ?G, Q1H
     Route: 065
  10. HALOPERIDOL. [Concomitant]
     Active Substance: HALOPERIDOL
     Indication: SEDATION
     Dosage: UNK
     Route: 065
  11. DIVALPROEX [Concomitant]
     Active Substance: DIVALPROEX SODIUM
     Indication: AGITATION
     Dosage: 1500 MG, BID
     Route: 065

REACTIONS (1)
  - Delirium [Unknown]
